FAERS Safety Report 4749022-1 (Version None)
Quarter: 2005Q3

REPORT INFORMATION
  Report Type: 
  Country: None (occurrence: None)
  Receive Date: 20050817
  Receipt Date: 20050804
  Transmission Date: 20060218
  Serious: Yes (Hospitalization)
  Sender: FDA-Public Use
  Company Number: 2005111836

PATIENT
  Age: 74 Year
  Sex: Female

DRUGS (13)
  1. ALDACTONE [Suspect]
     Indication: ILL-DEFINED DISORDER
     Dosage: 1 DOSE FORM (,DAILY), ORAL
     Route: 048
  2. TRINITRINA (GLYCERYL TRINITRATE) [Suspect]
     Indication: ILL-DEFINED DISORDER
     Dosage: ORAL
     Route: 048
     Dates: end: 20050326
  3. ACETYSALICYLATE LYSINE (ACETYLSALICYLATE LYSINE) [Suspect]
     Indication: ILL-DEFINED DISORDER
     Dosage: ORAL
     Route: 048
  4. BISOPROLOL (BISOPROLOL) [Suspect]
     Indication: ILL-DEFINED DISORDER
     Dosage: ORAL
     Route: 048
  5. DIAMICRON (GLICLAZIDE) [Suspect]
     Indication: ILL-DEFINED DISORDER
     Dosage: ORAL
     Route: 048
  6. PREVISCAN (FLUINDIONE) [Suspect]
     Indication: ILL-DEFINED DISORDER
     Dosage: (20 MG), ORAL
     Route: 048
     Dates: end: 20050330
  7. LEVOTHYROXINE SODIUM [Concomitant]
  8. FONZYLANE (BUFLOMEDIL HYDROCHLORIDE) [Concomitant]
  9. FENOFIBRATE [Concomitant]
  10. VASTAREL (TRIMETAZIDINE HYDROCHLORIDE) [Concomitant]
  11. DAFLON (DIOSMIN) [Concomitant]
  12. STILNOX (ZOLPIDEM) [Concomitant]
  13. ATARAX [Concomitant]

REACTIONS (8)
  - ANTI-THYROID ANTIBODY POSITIVE [None]
  - BLOOD THYROID STIMULATING HORMONE INCREASED [None]
  - COMPLEMENT FACTOR C3 INCREASED [None]
  - CONDITION AGGRAVATED [None]
  - HYPERGAMMAGLOBULINAEMIA [None]
  - PEMPHIGOID [None]
  - PULMONARY EMBOLISM [None]
  - SKIN ULCER [None]
